FAERS Safety Report 19410436 (Version 1)
Quarter: 2021Q2

REPORT INFORMATION
  Report Type: Spontaneous
  Country: US (occurrence: US)
  Receive Date: 20210612
  Receipt Date: 20210612
  Transmission Date: 20210717
  Serious: Yes (Other)
  Sender: FDA-Public Use
  Company Number: None

PATIENT
  Age: 78 Year
  Sex: Male
  Weight: 58.5 kg

DRUGS (7)
  1. CENTRUM [Concomitant]
     Active Substance: VITAMINS
  2. PROLIA [Suspect]
     Active Substance: DENOSUMAB
     Indication: OSTEOPOROSIS
     Dosage: ?          QUANTITY:1 INJECTION(S);OTHER FREQUENCY:SIX MONTHS;?
     Route: 030
     Dates: start: 20210510, end: 20210511
  3. DORZOLAMIDE [Concomitant]
     Active Substance: DORZOLAMIDE
  4. LATANOPROST. [Concomitant]
     Active Substance: LATANOPROST
  5. NORTRIPTYLINE [Concomitant]
     Active Substance: NORTRIPTYLINE
  6. GABAPENTIN. [Concomitant]
     Active Substance: GABAPENTIN
  7. SIMVASTATIN. [Concomitant]
     Active Substance: SIMVASTATIN

REACTIONS (12)
  - Fatigue [None]
  - Dyspnoea [None]
  - Nausea [None]
  - Gait disturbance [None]
  - Eating disorder [None]
  - Headache [None]
  - Back pain [None]
  - Asthenia [None]
  - Eye pain [None]
  - Abdominal pain upper [None]
  - Pain [None]
  - Pain in extremity [None]

NARRATIVE: CASE EVENT DATE: 20210510
